FAERS Safety Report 4359552-2 (Version None)
Quarter: 2004Q2

REPORT INFORMATION
  Report Type: 
  Country: None (occurrence: None)
  Receive Date: 20040514
  Receipt Date: 20040514
  Transmission Date: 20050107
  Serious: Yes (Hospitalization)
  Sender: FDA-Public Use
  Company Number: None

PATIENT
  Age: 63 Year
  Sex: Male

DRUGS (14)
  1. WARFARIN SODIUM [Suspect]
     Indication: CEREBROVASCULAR ACCIDENT
     Dosage: 10 MG MWF 7.5 MG ALL OTHER DAYS
     Dates: start: 20010830
  2. CELECOXIB [Concomitant]
  3. CLONIDINE HCL [Concomitant]
  4. FUROSEMIDE [Concomitant]
  5. VALSARTAN [Concomitant]
  6. GLYBURIDE [Concomitant]
  7. LORATADINE [Concomitant]
  8. METFORMIN HCL [Concomitant]
  9. METOPROLOL [Concomitant]
  10. KCL TAB [Concomitant]
  11. ACIPHEX [Concomitant]
  12. AVANDIA [Concomitant]
  13. ZOCOR [Concomitant]
  14. SPIRONOLACTONE [Concomitant]

REACTIONS (1)
  - INTERNATIONAL NORMALISED RATIO INCREASED [None]
